FAERS Safety Report 6242472-6 (Version None)
Quarter: 2009Q2

REPORT INFORMATION
  Report Type: 
  Country: None (occurrence: None)
  Receive Date: 20090622
  Receipt Date: 20090622
  Transmission Date: 20091009
  Serious: Yes (Other)
  Sender: FDA-Public Use
  Company Number: None

PATIENT
  Sex: Female
  Weight: 63.5036 kg

DRUGS (1)
  1. CYMBALTA [Suspect]
     Indication: DEPRESSION
     Dosage: 150 MG ONCE DAILY PO
     Route: 048
     Dates: start: 20080201, end: 20090601

REACTIONS (7)
  - DIZZINESS [None]
  - HEADACHE [None]
  - HOT FLUSH [None]
  - MUSCLE SPASMS [None]
  - MUSCULOSKELETAL STIFFNESS [None]
  - PARAESTHESIA [None]
  - TINNITUS [None]
